FAERS Safety Report 16312384 (Version 1)
Quarter: 2019Q2

REPORT INFORMATION
  Report Type: Report from Study
  Country: None (occurrence: GR)
  Receive Date: 20190515
  Receipt Date: 20190515
  Transmission Date: 20190711
  Serious: Yes (Hospitalization)
  Sender: FDA-Public Use
  Company Number: GR-ABBVIE-19S-066-2781755-00

PATIENT
  Age: 77 Year
  Sex: Male
  Weight: 57 kg

DRUGS (17)
  1. MADOPAR [Concomitant]
     Active Substance: BENSERAZIDE HYDROCHLORIDE\LEVODOPA
     Indication: PARKINSON^S DISEASE
     Dosage: (200+50)MG
     Route: 048
  2. ORBIMAG [Concomitant]
     Indication: MUSCLE SPASMS
     Route: 048
  3. ACTONEL [Concomitant]
     Active Substance: RISEDRONATE SODIUM
     Indication: OSTEOPENIA
     Route: 048
  4. SEROQUEL [Concomitant]
     Active Substance: QUETIAPINE FUMARATE
     Indication: ORGANIC BRAIN SYNDROME
     Route: 048
  5. LYRICA [Concomitant]
     Active Substance: PREGABALIN
     Indication: ORGANIC BRAIN SYNDROME
     Route: 048
  6. FORTATHRIN [Concomitant]
     Active Substance: INDOMETHACIN
     Indication: ARTHRITIS
     Route: 048
  7. VITAMIN B12 [Concomitant]
     Active Substance: CYANOCOBALAMIN
     Indication: ANAEMIA
     Route: 048
  8. TANILAS [Concomitant]
     Indication: CONSTIPATION
     Route: 048
  9. COMTAN [Concomitant]
     Active Substance: ENTACAPONE
     Indication: PARKINSON^S DISEASE
     Route: 048
  10. REQUIP [Concomitant]
     Active Substance: ROPINIROLE HYDROCHLORIDE
     Indication: PARKINSON^S DISEASE
     Route: 048
  11. IDEOS [Concomitant]
     Active Substance: CALCIUM CARBONATE\CHOLECALCIFEROL
     Indication: OSTEOPENIA
     Route: 048
  12. BESPAR [Concomitant]
     Active Substance: BUSPIRONE HYDROCHLORIDE
     Indication: ORGANIC BRAIN SYNDROME
     Route: 048
  13. ARTICLOX [Concomitant]
     Indication: ANAEMIA
     Route: 048
  14. DUODOPA [Suspect]
     Active Substance: CARBIDOPA\LEVODOPA
     Indication: PARKINSON^S DISEASE
     Dosage: MD: 9.5ML; CR:3.5ML/H; ED:1.2ML
     Route: 050
     Dates: start: 20180117
  15. DEMOREN [Concomitant]
     Active Substance: ALBUTEROL SULFATE\IPRATROPIUM BROMIDE
     Indication: CHRONIC OBSTRUCTIVE PULMONARY DISEASE
     Dosage: (0.5+2.5) MILLIGRAMS
     Route: 048
  16. CORTINEFF [Concomitant]
     Active Substance: FLUDROCORTISONE
     Indication: PRODUCT USED FOR UNKNOWN INDICATION
     Route: 048
     Dates: start: 20180213
  17. TRIATEC [Concomitant]
     Indication: CARDIAC DISORDER
     Route: 048

REACTIONS (4)
  - Pyrexia [Recovered/Resolved]
  - Cholelithiasis [Not Recovered/Not Resolved]
  - Muscle spasms [Recovered/Resolved]
  - Biliary colic [Unknown]

NARRATIVE: CASE EVENT DATE: 20190510
